FAERS Safety Report 11794583 (Version 2)
Quarter: 2015Q4

REPORT INFORMATION
  Report Type: Spontaneous
  Country: US (occurrence: None)
  Receive Date: 20151201
  Receipt Date: 20151207
  Transmission Date: 20160305
  Serious: Yes (Life-Threatening)
  Sender: FDA-Public Use
  Company Number: CA-ALSI-201500295

PATIENT
  Age: 73 Year
  Sex: Male

DRUGS (1)
  1. OXYGEN USP OXYGEN [Suspect]
     Active Substance: OXYGEN
     Indication: CHRONIC OBSTRUCTIVE PULMONARY DISEASE
     Dosage: 3 I ONCE A MINUTE RESPIRATORY
     Route: 055

REACTIONS (3)
  - Intentional product misuse [None]
  - Wrong technique in product usage process [None]
  - Burns second degree [None]
